FAERS Safety Report 20608395 (Version 1)
Quarter: 2022Q1

REPORT INFORMATION
  Report Type: Spontaneous
  Country: US (occurrence: None)
  Receive Date: 20220317
  Receipt Date: 20220317
  Transmission Date: 20220423
  Serious: No
  Sender: FDA-Public Use
  Company Number: None

PATIENT
  Sex: Female
  Weight: 48.08 kg

DRUGS (8)
  1. IBRANCE [Suspect]
     Active Substance: PALBOCICLIB
     Indication: Breast cancer female
     Dosage: 125MG QD FOR 21 DAYS
     Route: 048
  2. FULVESTRANT [Concomitant]
  3. LORAZEPAM [Concomitant]
     Active Substance: LORAZEPAM
  4. Multi For Her [Concomitant]
  5. PAROXETINE [Concomitant]
     Active Substance: PAROXETINE
  6. GABAPENTIN [Concomitant]
     Active Substance: GABAPENTIN
  7. LOSARTAN [Concomitant]
  8. LETROZOLE [Concomitant]
     Active Substance: LETROZOLE

REACTIONS (3)
  - Abdominal pain upper [None]
  - Diarrhoea [None]
  - Therapy cessation [None]
